FAERS Safety Report 9539140 (Version 1)
Quarter: 2013Q3

REPORT INFORMATION
  Report Type: Spontaneous
  Country: US (occurrence: None)
  Receive Date: 20130919
  Receipt Date: 20130919
  Transmission Date: 20140515
  Serious: Yes (Other)
  Sender: FDA-Public Use
  Company Number: None

PATIENT
  Age: 70 Year
  Sex: Female
  Weight: 81.65 kg

DRUGS (1)
  1. BIOMED FORMULA #5 [Suspect]
     Indication: ARTHRALGIA
     Dosage: SMALL DAB 3 X DAY SKIN
     Route: 061
     Dates: start: 20130801, end: 20130808

REACTIONS (4)
  - Rash erythematous [None]
  - Panic reaction [None]
  - Dyspnoea [None]
  - Application site rash [None]
